FAERS Safety Report 8810673 (Version 2)
Quarter: 2013Q1

REPORT INFORMATION
  Report Type: Report from Study
  Country: IL (occurrence: IL)
  Receive Date: 20120927
  Receipt Date: 20130124
  Transmission Date: 20140127
  Serious: Yes (Other)
  Sender: FDA-Public Use
  Company Number: IL-BAYER-2012-099088

PATIENT
  Age: 36 Year
  Sex: Female

DRUGS (2)
  1. BETAFERON [Suspect]
     Indication: MULTIPLE SCLEROSIS
     Dosage: 0.75 ML, QOD
     Route: 058
     Dates: start: 20030616
  2. IMMUNOGLOBULIN [Concomitant]
     Route: 042

REACTIONS (5)
  - Complication of pregnancy [Not Recovered/Not Resolved]
  - Postpartum disorder [None]
  - Influenza like illness [None]
  - Fatigue [None]
  - Exposure during pregnancy [None]
